FAERS Safety Report 6258011-X (Version None)
Quarter: 2009Q3

REPORT INFORMATION
  Report Type: 
  Country: None (occurrence: None)
  Receive Date: 20090707
  Receipt Date: 20090706
  Transmission Date: 20100115
  Serious: Yes (Death, Other)
  Sender: FDA-Public Use
  Company Number: JO-JNJFOC-20090701228

PATIENT
  Age: 80 Year
  Sex: Female

DRUGS (2)
  1. TAVANIC [Suspect]
     Indication: UPPER RESPIRATORY TRACT INFECTION
     Route: 048
  2. PREDNISOLONE [Suspect]
     Indication: BRONCHOSPASM
     Route: 048

REACTIONS (4)
  - ARRHYTHMIA [None]
  - ASTHENIA [None]
  - CARDIAC ARREST [None]
  - CIRCULATORY COLLAPSE [None]
